FAERS Safety Report 25094594 (Version 3)
Quarter: 2025Q2

REPORT INFORMATION
  Report Type: Report from Study
  Country: CO (occurrence: CO)
  Receive Date: 20250319
  Receipt Date: 20250414
  Transmission Date: 20250717
  Serious: Yes (Other)
  Sender: TAKEDA
  Company Number: CO-TAKEDA-2025TUS027954

PATIENT
  Age: 0 Year
  Sex: Male
  Weight: 124 kg

DRUGS (5)
  1. RURIOCTOCOG ALFA PEGOL [Suspect]
     Active Substance: RURIOCTOCOG ALFA PEGOL
     Indication: Prophylaxis
     Dosage: 5000 INTERNATIONAL UNIT, 2/WEEK
  2. RURIOCTOCOG ALFA PEGOL [Suspect]
     Active Substance: RURIOCTOCOG ALFA PEGOL
  3. RURIOCTOCOG ALFA PEGOL [Suspect]
     Active Substance: RURIOCTOCOG ALFA PEGOL
  4. ANTIHEMOPHILIC FACTOR HUMAN [Suspect]
     Active Substance: ANTIHEMOPHILIC FACTOR HUMAN
     Indication: Prophylaxis
  5. ACETAMINOPHEN [Concomitant]
     Active Substance: ACETAMINOPHEN
     Dosage: 1 GRAM, Q6HR
     Dates: start: 20250215, end: 20250217

REACTIONS (12)
  - Haemorrhage [Unknown]
  - Haemarthrosis [Unknown]
  - Drug ineffective [Unknown]
  - Arthritis [Recovered/Resolved]
  - Joint warmth [Unknown]
  - Arthropathy [Unknown]
  - Joint stiffness [Unknown]
  - Product dose omission issue [Unknown]
  - Oedema peripheral [Unknown]
  - Activated partial thromboplastin time prolonged [Unknown]
  - Arthralgia [Recovered/Resolved]
  - Drug hypersensitivity [Unknown]

NARRATIVE: CASE EVENT DATE: 19850201
